FAERS Safety Report 13898672 (Version 1)
Quarter: 2017Q3

REPORT INFORMATION
  Report Type: Spontaneous
  Country: JP (occurrence: JP)
  Receive Date: 20170823
  Receipt Date: 20170823
  Transmission Date: 20171127
  Serious: Yes (Other)
  Sender: FDA-Public Use
  Company Number: JP-TAKEDA-2017TEU003544

PATIENT
  Age: 50 Year
  Sex: Male

DRUGS (2)
  1. TACHOSIL [Suspect]
     Active Substance: FIBRINOGEN HUMAN\THROMBIN HUMAN
     Indication: OESOPHAGOBRONCHIAL FISTULA
     Dosage: UNK
     Route: 065
  2. TACHOSIL [Suspect]
     Active Substance: FIBRINOGEN HUMAN\THROMBIN HUMAN
     Indication: PNEUMONIA

REACTIONS (1)
  - Asphyxia [Unknown]
